FAERS Safety Report 9678027 (Version 4)
Quarter: 2014Q1

REPORT INFORMATION
  Report Type: Spontaneous
  Country: JP (occurrence: JP)
  Receive Date: 20131108
  Receipt Date: 20140321
  Transmission Date: 20141002
  Serious: Yes (Hospitalization, Other)
  Sender: FDA-Public Use
  Company Number: JP-ABBVIE-13P-087-1138630-00

PATIENT
  Age: 55 Year
  Sex: Male
  Weight: 61 kg

DRUGS (7)
  1. HUMIRA [Suspect]
     Indication: CROHN^S DISEASE
     Route: 058
     Dates: start: 20111214, end: 20111214
  2. HUMIRA [Suspect]
     Dates: start: 20111228, end: 20111228
  3. HUMIRA [Suspect]
     Dates: start: 20120104, end: 20131028
  4. PENTASA [Suspect]
     Indication: CROHN^S DISEASE
     Dosage: DURATION: ABOUT 10 YEARS
     Route: 048
     Dates: start: 2002, end: 201308
  5. PENTASA [Suspect]
     Route: 048
     Dates: end: 20130812
  6. PARENTERAL NUTRITION [Concomitant]
     Indication: CROHN^S DISEASE
     Dates: start: 2002
  7. BIFIDOBACTERIUM [Concomitant]
     Indication: CROHN^S DISEASE
     Dates: start: 2002

REACTIONS (18)
  - Pericardial effusion [Unknown]
  - C-reactive protein increased [Unknown]
  - Pyrexia [Unknown]
  - Puncture site haemorrhage [Unknown]
  - Antinuclear antibody increased [Unknown]
  - Cardiolipin antibody positive [Unknown]
  - Unevaluable event [Unknown]
  - Feeling abnormal [Unknown]
  - Chondrosarcoma [Not Recovered/Not Resolved]
  - Right ventricular failure [Not Recovered/Not Resolved]
  - Angiosarcoma [Not Recovered/Not Resolved]
  - Palpitations [Unknown]
  - Musculoskeletal stiffness [Unknown]
  - Diarrhoea [Unknown]
  - Metastases to bone [Unknown]
  - Tumour haemorrhage [Unknown]
  - Cardiac neoplasm malignant [Unknown]
  - Neoplasm [Unknown]
